FAERS Safety Report 10474157 (Version 4)
Quarter: 2014Q4

REPORT INFORMATION
  Report Type: Spontaneous
  Country: SE (occurrence: SE)
  Receive Date: 20140924
  Receipt Date: 20141017
  Transmission Date: 20150528
  Serious: Yes (Hospitalization, Other)
  Sender: FDA-Public Use
  Company Number: SE-TAKEDA-2014TUS008879

PATIENT
  Age: 24 Year
  Sex: Male

DRUGS (8)
  1. ENTYVIO [Suspect]
     Active Substance: VEDOLIZUMAB
     Dosage: 300 MG, SECOND DOSE
     Route: 042
     Dates: start: 20140916, end: 20140916
  2. PYRIDOXINE [Concomitant]
     Active Substance: PYRIDOXINE
  3. BEHEPAN [Concomitant]
     Active Substance: HYDROXOCOBALAMIN
  4. ENTYVIO [Suspect]
     Active Substance: VEDOLIZUMAB
     Indication: CROHN^S DISEASE
     Dosage: 300 MG, FIRST DOSE
     Route: 042
     Dates: start: 20140827, end: 20140827
  5. CITODON                            /00116401/ [Concomitant]
  6. PREDNISOLONE. [Concomitant]
     Active Substance: PREDNISOLONE
     Dosage: UNK
  7. FOLACIN                            /00024201/ [Concomitant]
     Active Substance: FOLIC ACID
  8. DETREMIN [Concomitant]

REACTIONS (1)
  - Subileus [Not Recovered/Not Resolved]

NARRATIVE: CASE EVENT DATE: 20140916
